FAERS Safety Report 6216279-X (Version None)
Quarter: 2009Q2

REPORT INFORMATION
  Report Type: 
  Country: None (occurrence: None)
  Receive Date: 20090605
  Receipt Date: 20090529
  Transmission Date: 20091009
  Serious: Yes (Hospitalization)
  Sender: FDA-Public Use
  Company Number: B0577421A

PATIENT
  Sex: Male

DRUGS (5)
  1. LEUKERAN [Suspect]
     Indication: B-CELL LYMPHOMA
     Route: 048
  2. ACETYLCYSTEINE [Concomitant]
  3. MALVITONA [Concomitant]
     Route: 048
  4. ACETAMINOPHEN W/ CODEINE [Concomitant]
  5. DEXOFEN [Concomitant]

REACTIONS (4)
  - ALVEOLITIS [None]
  - DYSPNOEA [None]
  - ILL-DEFINED DISORDER [None]
  - PULMONARY FIBROSIS [None]
